FAERS Safety Report 9503499 (Version 2)
Quarter: 2013Q4

REPORT INFORMATION
  Report Type: Spontaneous
  Country: US (occurrence: US)
  Receive Date: 20130906
  Receipt Date: 20131003
  Transmission Date: 20140711
  Serious: Yes (Death, Hospitalization)
  Sender: FDA-Public Use
  Company Number: US-UCBSA-096404

PATIENT
  Age: 83 Year
  Sex: Male
  Weight: 72.57 kg

DRUGS (1)
  1. KEPPRA XR [Suspect]
     Indication: PETIT MAL EPILEPSY
     Dosage: 500 MG
     Dates: start: 2009

REACTIONS (1)
  - Cardiac arrest [Fatal]
